FAERS Safety Report 16897125 (Version 1)
Quarter: 2019Q4

REPORT INFORMATION
  Report Type: Spontaneous
  Country: US (occurrence: US)
  Receive Date: 20191009
  Receipt Date: 20191009
  Transmission Date: 20200122
  Serious: No
  Sender: FDA-Public Use
  Company Number: US-LUPIN PHARMACEUTICALS INC.-2019-01148

PATIENT
  Sex: Male

DRUGS (1)
  1. AZITHROMYCIN TABLETS USP, 250 MG [Suspect]
     Active Substance: AZITHROMYCIN ANHYDROUS
     Indication: INFLUENZA
     Dosage: UNK (2 TABLET BY MOUTH TODAY AND THEN TAKE ONE TABLET DAILY FOR 4 DAYS)
     Route: 048

REACTIONS (2)
  - Off label use [Unknown]
  - Suspected product quality issue [Unknown]
